FAERS Safety Report 5389849-9 (Version None)
Quarter: 2007Q3

REPORT INFORMATION
  Report Type: 
  Country: None (occurrence: None)
  Receive Date: 20070718
  Receipt Date: 20070709
  Transmission Date: 20080115
  Serious: Yes (Hospitalization)
  Sender: FDA-Public Use
  Company Number: PHBS2007AU11725

PATIENT
  Age: 39 Year
  Sex: Male

DRUGS (7)
  1. CYCLOSPORINE [Suspect]
     Indication: STEM CELL TRANSPLANT
     Route: 065
     Dates: start: 20060601
  2. CYCLOSPORINE [Suspect]
     Route: 065
  3. PREDNISOLONE [Suspect]
     Indication: STEM CELL TRANSPLANT
     Route: 065
     Dates: start: 20060601
  4. METHYLPREDNISOLONE [Concomitant]
     Indication: STEM CELL TRANSPLANT
  5. ETOPOSIDE [Concomitant]
     Indication: STEM CELL TRANSPLANT
  6. IRRADIATION [Concomitant]
     Dosage: 1320 CGY
  7. NEUPOGEN [Concomitant]

REACTIONS (16)
  - ACUTE GRAFT VERSUS HOST DISEASE IN INTESTINE [None]
  - ACUTE GRAFT VERSUS HOST DISEASE IN SKIN [None]
  - BLOOD LACTATE DEHYDROGENASE INCREASED [None]
  - HYPOXIA [None]
  - ILEUS [None]
  - LETHARGY [None]
  - LIFE SUPPORT [None]
  - LUNG INFILTRATION [None]
  - MUCOSAL INFLAMMATION [None]
  - OLIGURIA [None]
  - PANCYTOPENIA [None]
  - RENAL FAILURE ACUTE [None]
  - RESPIRATORY DISTRESS [None]
  - RESPIRATORY FAILURE [None]
  - SPLENOMEGALY [None]
  - T-CELL LYMPHOMA [None]
